FAERS Safety Report 4461684-5 (Version None)
Quarter: 2004Q3

REPORT INFORMATION
  Report Type: 
  Country: None (occurrence: None)
  Receive Date: 20040924
  Receipt Date: 20040924
  Transmission Date: 20050211
  Serious: Yes (Disabling)
  Sender: FDA-Public Use
  Company Number: None

PATIENT
  Age: 50 Year
  Sex: Female
  Weight: 89.8122 kg

DRUGS (4)
  1. BEXTRA [Suspect]
     Indication: KNEE OPERATION
     Dates: start: 20041001, end: 20041015
  2. BEXTRA [Suspect]
     Indication: STAPHYLOCOCCAL INFECTION
     Dates: start: 20041001, end: 20041015
  3. OXYCILLIN IV PUSH [Suspect]
     Indication: INFLAMMATION
     Route: 040
     Dates: start: 20040929, end: 20041015
  4. OXYCILLIN IV PUSH [Suspect]
     Indication: KNEE OPERATION
     Route: 040
     Dates: start: 20040929, end: 20041015

REACTIONS (8)
  - DRUG HYPERSENSITIVITY [None]
  - FATIGUE [None]
  - FEAR [None]
  - FEELING ABNORMAL [None]
  - RASH [None]
  - SCAR [None]
  - STEVENS-JOHNSON SYNDROME [None]
  - VISUAL ACUITY REDUCED [None]
